FAERS Safety Report 4686389-7 (Version None)
Quarter: 2005Q2

REPORT INFORMATION
  Report Type: 
  Country: None (occurrence: None)
  Receive Date: 20050609
  Receipt Date: 20041122
  Transmission Date: 20051028
  Serious: Yes (Hospitalization)
  Sender: FDA-Public Use
  Company Number: US-ROCHE-386801

PATIENT
  Age: 51 Year
  Sex: Female
  Weight: 85 kg

DRUGS (9)
  1. PEG-INTERFERON ALFA 2A (RO 25-8310) [Suspect]
     Route: 058
     Dates: start: 20040706
  2. RIBAVIRIN [Suspect]
     Route: 048
     Dates: start: 20040706
  3. RIBAVIRIN [Suspect]
     Route: 048
     Dates: start: 20041116
  4. TIGAN [Concomitant]
     Dates: start: 20040720
  5. LORAZEPAM [Concomitant]
     Dates: start: 20021214
  6. PAROXETINE HCL [Concomitant]
     Dates: start: 20040115
  7. ESTRADIOL [Concomitant]
     Dates: start: 20020615
  8. LISINOPRIL [Concomitant]
     Dates: start: 20030615
  9. SOMA [Concomitant]
     Dates: start: 19990615

REACTIONS (5)
  - CONFUSIONAL STATE [None]
  - DEHYDRATION [None]
  - DISORIENTATION [None]
  - DIZZINESS [None]
  - SPEECH DISORDER [None]
